FAERS Safety Report 16794278 (Version 1)
Quarter: 2019Q3

REPORT INFORMATION
  Report Type: Spontaneous
  Country: US (occurrence: US)
  Receive Date: 20190911
  Receipt Date: 20190911
  Transmission Date: 20191005
  Serious: No
  Sender: FDA-Public Use
  Company Number: US-ROCHE-2296117

PATIENT
  Age: 83 Year
  Sex: Female
  Weight: 68.1 kg

DRUGS (1)
  1. ALECENSA [Suspect]
     Active Substance: ALECTINIB HYDROCHLORIDE
     Indication: LUNG NEOPLASM MALIGNANT
     Dosage: 4 CAPSULES (150 MG EACH) AT THE TIME OF BREAKFAST AND 4 CAPSULES (150 MG EACH) AT THE TIME OF DINNER
     Route: 065
     Dates: start: 20190319

REACTIONS (4)
  - Back pain [Unknown]
  - Product label on wrong product [Unknown]
  - Myalgia [Unknown]
  - Contusion [Recovered/Resolved]

NARRATIVE: CASE EVENT DATE: 20190331
